FAERS Safety Report 8851714 (Version 1)
Quarter: 2012Q4

REPORT INFORMATION
  Report Type: 
  Country: US (occurrence: US)
  Receive Date: 20121022
  Receipt Date: 20121022
  Transmission Date: 20130627
  Serious: No
  Sender: FDA-Public Use
  Company Number: US-PFIZER INC-2012261007

PATIENT
  Age: 65 Year

DRUGS (1)
  1. ATORVASTATIN CALCIUM [Suspect]
     Dosage: UNK

REACTIONS (1)
  - Abdominal discomfort [Unknown]
